FAERS Safety Report 8845778 (Version 1)
Quarter: 2012Q4

REPORT INFORMATION
  Report Type: 
  Country: US (occurrence: US)
  Receive Date: 20121017
  Receipt Date: 20121017
  Transmission Date: 20130627
  Serious: No
  Sender: FDA-Public Use
  Company Number: US-ASTRAZENECA-2012SE77761

PATIENT
  Age: 666 Month
  Sex: Male
  Weight: 172.4 kg

DRUGS (14)
  1. CRESTOR [Suspect]
     Indication: BLOOD CHOLESTEROL ABNORMAL
     Route: 048
     Dates: start: 2012, end: 2012
  2. CRESTOR [Suspect]
     Indication: ADVERSE EVENT
     Route: 048
     Dates: start: 2012, end: 2012
  3. CRESTOR [Suspect]
     Indication: BLOOD CHOLESTEROL ABNORMAL
     Route: 048
     Dates: start: 20120919, end: 20121006
  4. CRESTOR [Suspect]
     Indication: ADVERSE EVENT
     Route: 048
     Dates: start: 20120919, end: 20121006
  5. CLINORIL [Concomitant]
     Indication: BLOOD PRESSURE ABNORMAL
  6. ATENOLOL [Concomitant]
     Indication: BLOOD PRESSURE ABNORMAL
  7. GLYPIZIDE XL [Concomitant]
     Indication: DIABETES MELLITUS
  8. GENUVIA [Concomitant]
     Indication: DIABETES MELLITUS
  9. LEVOMIR [Concomitant]
  10. ASPIRIN [Concomitant]
  11. MULTIVITAMIN [Concomitant]
  12. FISH OIL [Concomitant]
  13. VITAMIN D3 [Concomitant]
  14. OMEGA 3 [Concomitant]

REACTIONS (8)
  - Urine analysis abnormal [Unknown]
  - Sinusitis [Recovering/Resolving]
  - Arthralgia [Unknown]
  - Nausea [Unknown]
  - Constipation [Unknown]
  - Abdominal pain [Recovered/Resolved]
  - Myalgia [Unknown]
  - Muscle spasms [Unknown]
